FAERS Safety Report 4497950-7 (Version None)
Quarter: 2004Q4

REPORT INFORMATION
  Report Type: 
  Country: None (occurrence: None)
  Receive Date: 20041105
  Receipt Date: 20041020
  Transmission Date: 20050328
  Serious: Yes (Hospitalization)
  Sender: FDA-Public Use
  Company Number: 1997-UP-00400

PATIENT
  Age: 64 Year
  Sex: Female

DRUGS (1)
  1. PRAMIPEXOLE (PRAMIPEXOLE DIHYDROCHLORIDE) [Suspect]
     Indication: PARKINSON'S DISEASE
     Dosage: PO
     Route: 048
     Dates: start: 19961026, end: 20001106

REACTIONS (8)
  - CLOSTRIDIAL INFECTION [None]
  - COLITIS COLLAGENOUS [None]
  - CYTOMEGALOVIRUS COLITIS [None]
  - HYPOTENSION [None]
  - INFECTION IN AN IMMUNOCOMPROMISED HOST [None]
  - PNEUMOTHORAX [None]
  - PROCEDURAL COMPLICATION [None]
  - WEIGHT DECREASED [None]
